FAERS Safety Report 23774098 (Version 1)
Quarter: 2024Q2

REPORT INFORMATION
  Report Type: Spontaneous
  Country: CA (occurrence: CA)
  Receive Date: 20240423
  Receipt Date: 20240423
  Transmission Date: 20240716
  Serious: Yes (Other)
  Sender: FDA-Public Use
  Company Number: CA-TEVA-VS-3187124

PATIENT
  Age: 64 Year
  Sex: Female
  Weight: 83 kg

DRUGS (1)
  1. METHOTREXATE SODIUM [Suspect]
     Active Substance: METHOTREXATE SODIUM
     Indication: Crohn^s disease
     Route: 065

REACTIONS (9)
  - Abdominal pain [Unknown]
  - Arthralgia [Unknown]
  - Diarrhoea [Unknown]
  - Diarrhoea [Unknown]
  - Fatigue [Unknown]
  - Haematochezia [Unknown]
  - Nausea [Unknown]
  - Off label use [Unknown]
  - Sleep disorder [Unknown]
